FAERS Safety Report 6417945-3 (Version None)
Quarter: 2009Q4

REPORT INFORMATION
  Report Type: 
  Country: None (occurrence: None)
  Receive Date: 20091028
  Receipt Date: 20091027
  Transmission Date: 20100525
  Serious: Yes (Hospitalization)
  Sender: FDA-Public Use
  Company Number: A0812730A

PATIENT
  Age: 68 Year
  Sex: Female
  Weight: 66.4 kg

DRUGS (1)
  1. ALLI [Suspect]
     Indication: WEIGHT CONTROL
     Route: 048
     Dates: start: 20090101, end: 20090925

REACTIONS (3)
  - CARDIAC DISORDER [None]
  - MYOCARDIAL INFARCTION [None]
  - THERAPEUTIC RESPONSE UNEXPECTED [None]
